FAERS Safety Report 18486609 (Version 3)
Quarter: 2020Q4

REPORT INFORMATION
  Report Type: Spontaneous
  Country: US (occurrence: US)
  Receive Date: 20201110
  Receipt Date: 20201208
  Transmission Date: 20210114
  Serious: Yes (Other)
  Sender: FDA-Public Use
  Company Number: US-PFIZER INC-2020439270

PATIENT
  Age: 64 Year
  Sex: Female

DRUGS (1)
  1. XELJANZ XR [Suspect]
     Active Substance: TOFACITINIB CITRATE
     Dosage: 11 MG
     Dates: start: 20201007, end: 20201030

REACTIONS (9)
  - Epistaxis [Recovered/Resolved]
  - Headache [Unknown]
  - Paranasal sinus discomfort [Unknown]
  - Staphylococcal infection [Unknown]
  - Ear haemorrhage [Recovered/Resolved]
  - Dry mouth [Unknown]
  - Sinusitis bacterial [Unknown]
  - Pain [Unknown]
  - Rash macular [Unknown]

NARRATIVE: CASE EVENT DATE: 2020
